FAERS Safety Report 5664009-2 (Version None)
Quarter: 2008Q1

REPORT INFORMATION
  Report Type: 
  Country: None (occurrence: None)
  Receive Date: 20080314
  Receipt Date: 20080310
  Transmission Date: 20080703
  Serious: Yes (Other)
  Sender: FDA-Public Use
  Company Number: PHEH2006US08961

PATIENT
  Age: 48 Year
  Sex: Female
  Weight: 87.074 kg

DRUGS (15)
  1. AREDIA [Suspect]
     Dosage: 90 MG, QMO
     Dates: start: 19990923, end: 20020410
  2. ZOMETA [Suspect]
     Dosage: 4 MG, QMO
     Dates: start: 20020508, end: 20041013
  3. VINCRISTINE [Concomitant]
     Indication: MULTIPLE MYELOMA
     Dates: start: 19990101, end: 20000101
  4. ADRIAMYCIN [Concomitant]
     Dosage: UNK, UNK
     Route: 042
     Dates: start: 19990101, end: 20000101
  5. DEXAMETHASONE TAB [Concomitant]
     Indication: MULTIPLE MYELOMA
     Dosage: UNK, UNK
     Route: 042
     Dates: start: 19990101, end: 20000101
  6. CYTOXAN [Concomitant]
     Indication: MULTIPLE MYELOMA
     Dosage: 4.5 GM/M2, UNK
     Route: 042
     Dates: start: 20000301, end: 20000401
  7. PROCRIT [Concomitant]
     Indication: ANAEMIA
     Dosage: 40000 U, PRN
  8. MELPHALAN [Concomitant]
     Dosage: 200 MG/M2, UNK
  9. ACYCLOVIR [Concomitant]
     Dosage: 400 MG, BID
     Route: 048
  10. FOLIC ACID [Concomitant]
     Dosage: 2 MG, QD
     Route: 048
  11. XANAX [Concomitant]
     Indication: DEPRESSION
     Dosage: 0.5MG Q8H PRN
     Route: 048
  12. PRILOSEC [Concomitant]
     Dosage: 20 MG, BID
     Route: 048
  13. OXYCODONE HCL [Concomitant]
     Indication: PAIN
     Dosage: 5MG Q6H PRN
     Route: 048
  14. NEPHROCAPS [Concomitant]
     Dosage: 1 GEL CAP QD
     Route: 048
  15. NIFEREX [Concomitant]
     Dosage: 150 MG, QD
     Route: 048

REACTIONS (29)
  - ABSCESS [None]
  - ANXIETY [None]
  - ARTHRALGIA [None]
  - BONE CYST [None]
  - BONE DISORDER [None]
  - BONE PAIN [None]
  - CONDITION AGGRAVATED [None]
  - GASTROINTESTINAL DISORDER [None]
  - GINGIVAL PAIN [None]
  - GINGIVAL SWELLING [None]
  - GINGIVITIS [None]
  - IMPAIRED HEALING [None]
  - INFECTION [None]
  - INFLUENZA LIKE ILLNESS [None]
  - INJURY [None]
  - MASTICATION DISORDER [None]
  - MYALGIA [None]
  - ORAL DISCOMFORT [None]
  - ORAL DISORDER [None]
  - ORAL SURGERY [None]
  - OSTEONECROSIS [None]
  - PAIN [None]
  - RETINAL INFARCTION [None]
  - STOMATITIS [None]
  - TOOTH EXTRACTION [None]
  - TOOTH FRACTURE [None]
  - VAGINAL HAEMORRHAGE [None]
  - VISUAL DISTURBANCE [None]
  - WOUND COMPLICATION [None]
